FAERS Safety Report 15159605 (Version 2)
Quarter: 2018Q3

REPORT INFORMATION
  Report Type: Spontaneous
  Country: US (occurrence: US)
  Receive Date: 20180718
  Receipt Date: 20180803
  Transmission Date: 20181010
  Serious: Yes (Hospitalization, Other)
  Sender: FDA-Public Use
  Company Number: US-IMPAX LABORATORIES, INC-2018-IPXL-02384

PATIENT
  Age: 72 Year
  Sex: Female

DRUGS (1)
  1. RYTARY [Suspect]
     Active Substance: CARBIDOPA\LEVODOPA
     Indication: PARKINSON^S DISEASE
     Dosage: 48.75/195 MG, FOUR CAPSULES FOUR TIMES DAILY
     Route: 048
     Dates: start: 201709

REACTIONS (6)
  - Drug interaction [Unknown]
  - Dyskinesia [Recovering/Resolving]
  - Prescribed overdose [Unknown]
  - Tremor [Recovering/Resolving]
  - Arthritis [Recovered/Resolved with Sequelae]
  - Disorientation [Recovering/Resolving]

NARRATIVE: CASE EVENT DATE: 20180618
